FAERS Safety Report 7883715-2 (Version None)
Quarter: 2011Q4

REPORT INFORMATION
  Report Type: 
  Country: None (occurrence: None)
  Receive Date: 20111102
  Receipt Date: 20111019
  Transmission Date: 20120403
  Serious: Yes (Hospitalization)
  Sender: FDA-Public Use
  Company Number: JP-SANOFI-AVENTIS-2011SA058643

PATIENT
  Age: 46 Year
  Sex: Female

DRUGS (5)
  1. INSULIN LISPRO [Suspect]
     Indication: SUICIDE ATTEMPT
     Dosage: IN MORE THAN 10 SITES
     Route: 058
  2. LANTUS [Suspect]
     Indication: TYPE 2 DIABETES MELLITUS
     Route: 065
  3. LANTUS [Suspect]
     Dosage: MASSIVE INSULIN INJECTIONS IN MORE THAN 10 SITESDOSE: 3000 (UNITS UNSPECIFIED)
     Route: 058
  4. LANTUS [Suspect]
     Indication: SUICIDE ATTEMPT
     Route: 065
  5. LANTUS [Suspect]
     Dosage: MASSIVE INSULIN INJECTIONS IN MORE THAN 10 SITESDOSE: 3000 (UNITS UNSPECIFIED)
     Route: 058

REACTIONS (4)
  - BLOOD GLUCOSE DECREASED [None]
  - SUICIDE ATTEMPT [None]
  - ABNORMAL BEHAVIOUR [None]
  - INTENTIONAL OVERDOSE [None]
